FAERS Safety Report 4705890-0 (Version None)
Quarter: 2005Q2

REPORT INFORMATION
  Report Type: 
  Country: None (occurrence: None)
  Receive Date: 20050629
  Receipt Date: 20050425
  Transmission Date: 20051028
  Serious: Yes (Death, Hospitalization)
  Sender: FDA-Public Use
  Company Number: 05P-163-0298364-00

PATIENT
  Age: 72 Year
  Sex: Female
  Weight: 58.0604 kg

DRUGS (14)
  1. HUMIRA [Suspect]
     Indication: RHEUMATOID ARTHRITIS
     Dosage: 40 MG, 1 IN 2 WK, SUBCUTANEOUS
     Route: 058
     Dates: start: 20031001, end: 20050401
  2. ALPRAZOLAM [Concomitant]
  3. MULTI-VITAMINS [Concomitant]
  4. CELECOXIB [Concomitant]
  5. FOLIC ACID [Concomitant]
  6. OMEPRAZOLE [Concomitant]
  7. CLOPIDOGREL BISULFATE [Concomitant]
  8. METHOTREXATE [Concomitant]
  9. ALENDRONATE SODIUM [Concomitant]
  10. ATENOLOL [Concomitant]
  11. ATORVASTATIN CALCIUM [Concomitant]
  12. LEXAPRO [Concomitant]
  13. PROPACET 100 [Concomitant]
  14. WARFARIN SODIUM [Concomitant]

REACTIONS (3)
  - HISTOPLASMOSIS [None]
  - LABORATORY TEST ABNORMAL [None]
  - SEPSIS [None]
